FAERS Safety Report 19477542 (Version 1)
Quarter: 2021Q2

REPORT INFORMATION
  Report Type: Spontaneous
  Country: NL (occurrence: NL)
  Receive Date: 20210630
  Receipt Date: 20210630
  Transmission Date: 20210717
  Serious: Yes (Other)
  Sender: FDA-Public Use
  Company Number: NL-MYLANLABS-2021M1037947

PATIENT
  Age: 37 Year
  Sex: Male
  Weight: 135 kg

DRUGS (1)
  1. ITRACONAZOLE. [Suspect]
     Active Substance: ITRACONAZOLE
     Indication: ONYCHOMYCOSIS
     Dosage: 200 MILLIGRAM, BID (TWICE DAILY, 2 CAPSULES)
     Dates: start: 20210314, end: 20210316

REACTIONS (2)
  - Hallucination [Recovered/Resolved]
  - Nightmare [Recovered/Resolved]

NARRATIVE: CASE EVENT DATE: 20210316
